FAERS Safety Report 23301703 (Version 2)
Quarter: 2024Q4

REPORT INFORMATION
  Report Type: Spontaneous
  Country: US (occurrence: US)
  Receive Date: 20231215
  Receipt Date: 20241105
  Transmission Date: 20250115
  Serious: No
  Sender: MYLAN
  Company Number: US-MYLANLABS-2023M1129243

PATIENT
  Sex: Female

DRUGS (3)
  1. NEURONTIN [Suspect]
     Active Substance: GABAPENTIN
     Indication: Pain in extremity
     Dosage: 100 MILLIGRAM, TID (TAKE ONE CAP BY MOUTH THREE TIMES DAILY AS NEEDED)
     Route: 048
  2. NEURONTIN [Suspect]
     Active Substance: GABAPENTIN
     Indication: Neuralgia
     Dosage: 100 MILLIGRAM, QD (TAKE ONE CAP BY MOUTH DAILY AS NEEDED)
     Route: 048
  3. PALBOCICLIB [Concomitant]
     Active Substance: PALBOCICLIB
     Dosage: 100 MILLIGRAM (TAKE ONE TAB BY MOUTH DAILY FOR 21 CONSECUTIVE DAYS THEN STOP FOR 7 DAYS. AVOID)
     Route: 048

REACTIONS (2)
  - Off label use [Unknown]
  - Underdose [Unknown]
